FAERS Safety Report 18016891 (Version 2)
Quarter: 2020Q3

REPORT INFORMATION
  Report Type: Spontaneous
  Country: CN (occurrence: CN)
  Receive Date: 20200713
  Receipt Date: 20200921
  Transmission Date: 20201103
  Serious: Yes (Hospitalization)
  Sender: FDA-Public Use
  Company Number: CN-NOVOPROD-738830

PATIENT
  Age: 47 Year
  Sex: Female
  Weight: 69.9 kg

DRUGS (2)
  1. NOVOMIX 30 [Suspect]
     Active Substance: INSULIN ASPART
     Indication: TYPE 2 DIABETES MELLITUS
     Dosage: 10?14 IU , BID
     Route: 058
     Dates: start: 2018
  2. NOVOMIX 30 [Suspect]
     Active Substance: INSULIN ASPART
     Dosage: 10?14 IU , BID
     Route: 058
     Dates: start: 20200519, end: 20200529

REACTIONS (2)
  - Diabetes mellitus [Unknown]
  - Hypoglycaemia [Recovered/Resolved]
